FAERS Safety Report 4399769-4 (Version None)
Quarter: 2004Q3

REPORT INFORMATION
  Report Type: 
  Country: None (occurrence: None)
  Receive Date: 20040714
  Receipt Date: 20040701
  Transmission Date: 20050211
  Serious: Yes (Hospitalization)
  Sender: FDA-Public Use
  Company Number: 03P-062-0238036-00

PATIENT
  Age: 47 Year
  Sex: Male
  Weight: 188 kg

DRUGS (8)
  1. HUMIRA [Suspect]
     Indication: RHEUMATOID ARTHRITIS
     Dosage: 1 IN 2 WK, SUBCUTANEOUS
     Route: 058
     Dates: start: 20030224, end: 20031021
  2. METHOTREXATE [Concomitant]
  3. CALCIUM FOLINATE [Concomitant]
  4. METHYLPREDNISOLONE [Concomitant]
  5. OSTEOPLUS [Concomitant]
  6. ALLOPURINOL [Concomitant]
  7. ACETAMINOPHEN W/ CODEINE [Concomitant]
  8. TOCOPHEROL CONCENTRATE CAP [Concomitant]

REACTIONS (25)
  - AGGRESSION [None]
  - APATHY [None]
  - ARTHRALGIA [None]
  - ASTHENIA [None]
  - BIPOLAR I DISORDER [None]
  - DELUSION OF GRANDEUR [None]
  - DISSOCIATION [None]
  - FAMILY STRESS [None]
  - HYPOREFLEXIA [None]
  - ILLUSION [None]
  - INTERVERTEBRAL DISC DISORDER [None]
  - IRRITABILITY [None]
  - JOINT RANGE OF MOTION DECREASED [None]
  - JOINT SWELLING [None]
  - LEGAL PROBLEM [None]
  - LOGORRHOEA [None]
  - MANIA [None]
  - PERSECUTORY DELUSION [None]
  - PSYCHOTIC DISORDER [None]
  - RALES [None]
  - SCAR [None]
  - SENSORY LOSS [None]
  - SPINAL DISORDER [None]
  - THINKING ABNORMAL [None]
  - URTICARIA [None]
